FAERS Safety Report 5361557-X (Version None)
Quarter: 2007Q2

REPORT INFORMATION
  Report Type: 
  Country: None (occurrence: None)
  Receive Date: 20070619
  Receipt Date: 20070612
  Transmission Date: 20071010
  Serious: Yes (Hospitalization, Other)
  Sender: FDA-Public Use
  Company Number: PHBS2007IT09887

PATIENT
  Age: 9 Year
  Sex: Female

DRUGS (5)
  1. FLUDARABINE PHOSPHATE [Suspect]
     Indication: BONE MARROW TRANSPLANT
     Route: 065
  2. ATGAM [Suspect]
     Indication: BONE MARROW TRANSPLANT
     Route: 065
  3. CYCLOPHOSPHAMIDE [Concomitant]
     Indication: BONE MARROW TRANSPLANT
     Route: 065
  4. METHOTREXATE [Concomitant]
     Indication: BONE MARROW TRANSPLANT
     Route: 065
  5. CYCLOSPORINE [Suspect]
     Indication: BONE MARROW TRANSPLANT
     Route: 065

REACTIONS (7)
  - ACUTE GRAFT VERSUS HOST DISEASE IN SKIN [None]
  - AREFLEXIA [None]
  - CONVULSION [None]
  - COORDINATION ABNORMAL [None]
  - DIPLOPIA [None]
  - HAEMOLYTIC ANAEMIA [None]
  - MILLER FISHER SYNDROME [None]
